FAERS Safety Report 17584355 (Version 2)
Quarter: 2020Q2

REPORT INFORMATION
  Report Type: Spontaneous
  Country: US (occurrence: US)
  Receive Date: 20200326
  Receipt Date: 20200523
  Transmission Date: 20200713
  Serious: No
  Sender: FDA-Public Use
  Company Number: NVSC2020US084365

PATIENT
  Sex: Female

DRUGS (4)
  1. MEKINIST [Suspect]
     Active Substance: TRAMETINIB DIMETHYL SULFOXIDE
     Indication: LUNG CARCINOMA CELL TYPE UNSPECIFIED STAGE 0
     Dosage: 2 MG, QD
     Route: 048
     Dates: start: 20191224
  2. TAFINLAR [Suspect]
     Active Substance: DABRAFENIB MESYLATE
     Indication: LUNG CARCINOMA CELL TYPE UNSPECIFIED STAGE 0
     Dosage: 75 MG, BID
     Route: 048
     Dates: start: 20191223
  3. MEKINIST [Suspect]
     Active Substance: TRAMETINIB DIMETHYL SULFOXIDE
     Indication: BREAST CANCER FEMALE
  4. TAFINLAR [Suspect]
     Active Substance: DABRAFENIB MESYLATE
     Indication: BREAST CANCER FEMALE

REACTIONS (11)
  - Rash [Unknown]
  - Pain in extremity [Unknown]
  - Pain [Unknown]
  - Blood pressure increased [Unknown]
  - Peripheral swelling [Unknown]
  - Abdominal pain [Unknown]
  - Back pain [Unknown]
  - Weight increased [Unknown]
  - Joint swelling [Unknown]
  - Pyrexia [Unknown]
  - Musculoskeletal pain [Unknown]
